FAERS Safety Report 16409999 (Version 1)
Quarter: 2019Q2

REPORT INFORMATION
  Report Type: Spontaneous
  Country: US (occurrence: US)
  Receive Date: 20190503
  Receipt Date: 20190503
  Transmission Date: 20190711
  Serious: No
  Sender: FDA-Public Use
  Company Number: None

PATIENT
  Age: 53 Year
  Sex: Male
  Weight: 136.08 kg

DRUGS (1)
  1. COSENTYX [Suspect]
     Active Substance: SECUKINUMAB
     Indication: DYSHIDROTIC ECZEMA
     Dosage: INJECT 300MG (2 PENS) SUBCUTANEOUSLY EVERY WEEK  FOR WEEKS 2,3 AND 4  AS DIRECTED
     Route: 058
     Dates: start: 201805

REACTIONS (1)
  - Fatigue [None]
